FAERS Safety Report 9664840 (Version 1)
Quarter: 2013Q4

REPORT INFORMATION
  Report Type: Spontaneous
  Country: DE (occurrence: None)
  Receive Date: 20131031
  Receipt Date: 20131031
  Transmission Date: 20140711
  Serious: Yes (Other)
  Sender: FDA-Public Use
  Company Number: 1310-1348

PATIENT
  Age: 78 Year
  Sex: Male

DRUGS (1)
  1. EYELEA [Suspect]
     Indication: POLYPOIDAL CHOROIDAL VASCULOPATHY
     Route: 031
     Dates: start: 20130124, end: 20130124

REACTIONS (1)
  - Retinal haemorrhage [None]
